FAERS Safety Report 5903126-6 (Version None)
Quarter: 2008Q3

REPORT INFORMATION
  Report Type: 
  Country: None (occurrence: None)
  Receive Date: 20080930
  Receipt Date: 20080929
  Transmission Date: 20090109
  Serious: Yes (Hospitalization)
  Sender: FDA-Public Use
  Company Number: PHHO2000IT00002

PATIENT
  Sex: Female
  Weight: 62 kg

DRUGS (3)
  1. PLACEBO PLACEBO [Suspect]
     Route: 042
     Dates: start: 19990306
  2. NEORAL [Suspect]
     Route: 048
     Dates: start: 19990506, end: 19990514
  3. URBASON (METHYLPREDNISOLONE) [Suspect]
     Route: 048
     Dates: start: 19990428

REACTIONS (1)
  - HAEMOLYSIS [None]
